FAERS Safety Report 18427627 (Version 3)
Quarter: 2022Q1

REPORT INFORMATION
  Report Type: Spontaneous
  Country: US (occurrence: US)
  Receive Date: 20201026
  Receipt Date: 20220323
  Transmission Date: 20220423
  Serious: No
  Sender: FDA-Public Use
  Company Number: US-PFIZER INC-2020411652

PATIENT
  Age: 53 Year
  Sex: Female

DRUGS (1)
  1. XELJANZ XR [Suspect]
     Active Substance: TOFACITINIB CITRATE
     Dosage: 11 MG, 1X/DAY

REACTIONS (9)
  - Pain [Unknown]
  - Joint lock [Unknown]
  - Illness [Unknown]
  - Nasopharyngitis [Unknown]
  - Arthralgia [Unknown]
  - Disability [Unknown]
  - Dyspnoea [Unknown]
  - Pain in extremity [Unknown]
  - Movement disorder [Unknown]
